FAERS Safety Report 9353995 (Version 3)
Quarter: 2013Q4

REPORT INFORMATION
  Report Type: Report from Study
  Country: US (occurrence: US)
  Receive Date: 20130618
  Receipt Date: 20131212
  Transmission Date: 20140711
  Serious: Yes (Other)
  Sender: FDA-Public Use
  Company Number: US-VERTEX PHARMACEUTICALS INC-2013-007022

PATIENT
  Age: 32 Year
  Sex: Female
  Weight: 55.2 kg

DRUGS (8)
  1. VX-950 (TELAPREVIR) [Suspect]
     Indication: HEPATITIS C
     Dosage: 1125 MG, QD
     Dates: start: 20120702, end: 20120924
  2. Z-PEGYLATED INTERFERON-2A [Suspect]
     Indication: HEPATITIS C
     Dosage: 180 ?G, QW
     Dates: start: 20120702, end: 20120924
  3. Z-RIBAVIRIN [Suspect]
     Indication: HEPATITIS C
     Dosage: 1000 MG, QD
     Dates: start: 20120702, end: 20120924
  4. LEXAPRO [Concomitant]
     Indication: DEPRESSION
     Dosage: 20 MG, UNK
     Dates: start: 20120810
  5. MARINOL [Concomitant]
     Indication: NAUSEA
     Dosage: 5 MG, UNK
     Dates: start: 20120904
  6. MARINOL [Concomitant]
     Indication: VOMITING
  7. LORTAB [Concomitant]
     Indication: MYALGIA
     Dosage: UNK
     Dates: start: 20120830
  8. ACETAMINOPHEN [Concomitant]
     Indication: INFLUENZA LIKE ILLNESS
     Dosage: 500 MG, PRN
     Dates: start: 20120702

REACTIONS (1)
  - Colitis microscopic [Recovered/Resolved]
